FAERS Safety Report 7396316-X (Version None)
Quarter: 2011Q1

REPORT INFORMATION
  Report Type: 
  Country: None (occurrence: None)
  Receive Date: 20110331
  Receipt Date: 20110331
  Transmission Date: 20110831
  Serious: Yes (Other)
  Sender: FDA-Public Use
  Company Number: None

PATIENT
  Age: 44 Year
  Sex: Female
  Weight: 81.6475 kg

DRUGS (1)
  1. PHENTERMINE [Suspect]
     Indication: WEIGHT
     Dosage: 3.75 MG 1 A DAY
     Dates: start: 20110303

REACTIONS (2)
  - SWOLLEN TONGUE [None]
  - TONGUE BLISTERING [None]
